FAERS Safety Report 25844211 (Version 1)
Quarter: 2025Q3

REPORT INFORMATION
  Report Type: Spontaneous
  Country: US (occurrence: US)
  Receive Date: 20250925
  Receipt Date: 20250925
  Transmission Date: 20251021
  Serious: No
  Sender: BOEHRINGER INGELHEIM
  Company Number: US-Komodo Health-a23aa00000ALVpSAAX

PATIENT
  Age: 77 Year
  Sex: Male

DRUGS (5)
  1. CYLTEZO [Suspect]
     Active Substance: ADALIMUMAB-ADBM
     Indication: Rheumatoid arthritis
  2. ELIQUIS [Concomitant]
     Active Substance: APIXABAN
     Indication: Product used for unknown indication
  3. CRESTOR [Concomitant]
     Active Substance: ROSUVASTATIN CALCIUM
     Indication: Product used for unknown indication
  4. METOPROLOL [Concomitant]
     Active Substance: METOPROLOL
     Indication: Product used for unknown indication
  5. VITAMIN D [Concomitant]
     Active Substance: VITAMIN D NOS
     Indication: Product used for unknown indication

REACTIONS (1)
  - Optic neuropathy [Not Recovered/Not Resolved]

NARRATIVE: CASE EVENT DATE: 20250901
